FAERS Safety Report 9053517 (Version 1)
Quarter: 2013Q1

REPORT INFORMATION
  Report Type: Spontaneous
  Country: US (occurrence: None)
  Receive Date: 20130201
  Receipt Date: 20130201
  Transmission Date: 20140127
  Serious: No
  Sender: FDA-Public Use
  Company Number: None

PATIENT
  Age: 70 Year
  Sex: Female

DRUGS (4)
  1. ATORVASTATIN [Suspect]
     Indication: HYPERLIPIDAEMIA
     Dates: start: 2006, end: 20110802
  2. NIACIN [Suspect]
     Indication: HYPERLIPIDAEMIA
     Dates: start: 2006, end: 20110802
  3. SPIRIVA [Concomitant]
  4. WELLBUTRIN [Concomitant]

REACTIONS (5)
  - Bronchitis [None]
  - Hepatitis [None]
  - Weight decreased [None]
  - Decreased appetite [None]
  - Pruritus [None]
